FAERS Safety Report 17283663 (Version 2)
Quarter: 2020Q1

REPORT INFORMATION
  Report Type: Report from Study
  Country: KR (occurrence: KR)
  Receive Date: 20200117
  Receipt Date: 20200324
  Transmission Date: 20200409
  Serious: Yes (Hospitalization)
  Sender: FDA-Public Use
  Company Number: KR-ACTELION-A-CH2019-193984

PATIENT
  Age: 54 Year
  Sex: Female
  Weight: 62 kg

DRUGS (12)
  1. UPTRAVI [Suspect]
     Active Substance: SELEXIPAG
     Indication: PULMONARY ARTERIAL HYPERTENSION
     Dosage: 400 MCG, BID
     Route: 048
     Dates: start: 20191219, end: 20191225
  2. XARELTO [Concomitant]
     Active Substance: RIVAROXABAN
     Dosage: 20.00 MG, QD
     Route: 048
     Dates: start: 20190702
  3. PAHTENSION [Concomitant]
     Active Substance: SILDENAFIL CITRATE
     Indication: PULMONARY ARTERIAL HYPERTENSION
     Dosage: 60 MG, QD
     Route: 048
     Dates: start: 20191226
  4. TRACLEER [Concomitant]
     Active Substance: BOSENTAN
     Indication: PULMONARY ARTERIAL HYPERTENSION
     Dosage: 125 MG, QD
     Route: 048
     Dates: start: 20190802, end: 20190811
  5. MACITENTAN [Suspect]
     Active Substance: MACITENTAN
     Indication: PULMONARY ARTERIAL HYPERTENSION
     Dosage: 10 MG, QD
     Route: 048
     Dates: start: 20190705
  6. CORDARONE [Concomitant]
     Active Substance: AMIODARONE HYDROCHLORIDE
     Dosage: 400 MG, QD
     Route: 048
     Dates: start: 20190702, end: 20190801
  7. CORDARONE [Concomitant]
     Active Substance: AMIODARONE HYDROCHLORIDE
     Dosage: 200 MG, QD
     Route: 048
     Dates: start: 20190802
  8. UPTRAVI [Suspect]
     Active Substance: SELEXIPAG
     Dosage: 200 MCG, BID
     Route: 048
     Dates: start: 20191213, end: 20191218
  9. TOREM [Concomitant]
     Active Substance: TORSEMIDE
     Indication: OEDEMA
     Dosage: 5.00 MG, QD
     Route: 048
     Dates: start: 20190705, end: 20190811
  10. LASIX [Concomitant]
     Active Substance: FUROSEMIDE
     Indication: OEDEMA
     Dosage: 20.00 MG, QD
     Route: 048
     Dates: start: 20190802, end: 20190811
  11. ALDACTONE [Concomitant]
     Active Substance: SPIRONOLACTONE
     Indication: OEDEMA
     Dosage: 25.00 MG, QD
     Route: 048
     Dates: start: 20190702, end: 20190704
  12. CONCOR [Concomitant]
     Active Substance: BISOPROLOL FUMARATE
     Dosage: 1.25 MG, QD
     Route: 048
     Dates: start: 20190702, end: 20190811

REACTIONS (8)
  - Pain [Recovered/Resolved]
  - Cardioversion [Recovered/Resolved]
  - Syncope [Recovered/Resolved]
  - Vomiting [Recovering/Resolving]
  - Dysuria [Recovered/Resolved]
  - Palpitations [Recovered/Resolved]
  - Dizziness [Recovered/Resolved]
  - Diarrhoea [Recovering/Resolving]

NARRATIVE: CASE EVENT DATE: 20190715
